FAERS Safety Report 6934775 (Version 4)
Quarter: 2012Q4

REPORT INFORMATION
  Report Type: 
  Country: DE (occurrence: DE)
  Receive Date: 20090312
  Receipt Date: 20121109
  Transmission Date: 20130627
  Serious: Yes (Death, Hospitalization)
  Sender: FDA-Public Use
  Company Number: DE-RANBAXY-2009RR-22260

PATIENT
  Age: 74 Year
  Sex: Male
  Weight: 70 kg

DRUGS (9)
  1. IBUPROFEN [Suspect]
     Indication: GOUTY ARTHRITIS
     Dosage: 400 mg, qd
     Route: 048
     Dates: start: 20080901, end: 20081029
  2. FALITHROM [Suspect]
     Indication: AORTIC VALVE REPLACEMENT
     Dosage: 1.5 mg, qd
     Route: 048
     Dates: start: 2001, end: 20081031
  3. ALLOPURINOL [Concomitant]
     Indication: HYPERURICAEMIA
     Dosage: 100 mg, qd
     Route: 048
     Dates: start: 200805
  4. AMITRIPTYLINE [Concomitant]
     Indication: DEPRESSION
     Dosage: 25 mg, qd
     Route: 048
     Dates: start: 1985
  5. DIGIMERCK PICO [Concomitant]
     Indication: ATRIAL FIBRILLATION
     Dosage: 0.05 mg, qd
     Route: 048
     Dates: start: 200603
  6. DIOVAN [Concomitant]
     Indication: HYPERTENSION
     Dosage: 160 mg, qd
     Route: 048
     Dates: start: 2002
  7. METOPROLOL SUCC [Concomitant]
     Indication: TACHYCARDIA
     Dosage: 47.5 mg, bid
     Route: 048
     Dates: start: 2000
  8. OMEP [Concomitant]
     Indication: PROPHYLAXIS AGAINST GASTROINTESTINAL ULCER
     Dosage: 20 mg, qd
     Route: 048
     Dates: start: 2004, end: 20081031
  9. SIMVASTATIN [Concomitant]
     Indication: HYPERCHOLESTEROLAEMIA
     Dosage: 30 mg, qd
     Route: 048
     Dates: start: 2004

REACTIONS (2)
  - Gastrointestinal haemorrhage [Recovered/Resolved]
  - Drug interaction [Recovered/Resolved]
